FAERS Safety Report 6971002-6 (Version None)
Quarter: 2010Q3

REPORT INFORMATION
  Report Type: 
  Country: None (occurrence: None)
  Receive Date: 20100908
  Receipt Date: 20100901
  Transmission Date: 20110219
  Serious: Yes (Hospitalization)
  Sender: FDA-Public Use
  Company Number: JP-ROCHE-725506

PATIENT
  Age: 69 Year
  Sex: Female
  Weight: 41 kg

DRUGS (2)
  1. COPEGUS [Suspect]
     Dosage: NOTE: DOSAGE IS UNCERTAIN.
     Route: 048
     Dates: start: 20090701
  2. PEG-INTRON [Suspect]
     Dosage: NOTE: DOSAGE IS UNCERTAIN.
     Route: 058

REACTIONS (2)
  - DIABETIC KETOACIDOSIS [None]
  - PNEUMOMEDIASTINUM [None]
